FAERS Safety Report 8584778-1 (Version None)
Quarter: 2012Q3

REPORT INFORMATION
  Report Type: 
  Country: None (occurrence: None)
  Receive Date: 20120730
  Receipt Date: 20120717
  Transmission Date: 20120928
  Serious: Yes (Hospitalization)
  Sender: FDA-Public Use
  Company Number: DSA_58593_2012

PATIENT
  Age: 78 Year
  Sex: Male

DRUGS (4)
  1. DIAMICRON (DIAMICRON-GLICLAZIDE) (NOT SPECIFIED) [Suspect]
     Indication: TYPE 2 DIABETES MELLITUS
     Dosage: (DF (DAILY) ORAL)
     Route: 048
  2. FLAGYL [Suspect]
     Indication: PRODUCT USED FOR UNKNOWN INDICATION
     Dosage: (1000 MG, DAILY ORAL)
     Route: 048
     Dates: start: 20120619, end: 20120626
  3. NEBIVOLOL [Concomitant]
  4. CLARITHROMYCIN [Suspect]
     Indication: PRODUCT USED FOR UNKNOWN INDICATION
     Dosage: (500 MG, DAILY ORAL)
     Route: 048
     Dates: start: 20120619, end: 20120625

REACTIONS (2)
  - HYPOGLYCAEMIA [None]
  - POTENTIATING DRUG INTERACTION [None]
